FAERS Safety Report 4625061-6 (Version None)
Quarter: 2005Q2

REPORT INFORMATION
  Report Type: 
  Country: None (occurrence: None)
  Receive Date: 20050325
  Receipt Date: 20050126
  Transmission Date: 20051028
  Serious: No
  Sender: FDA-Public Use
  Company Number: US_0502112882

PATIENT
  Age: 78 Year
  Sex: Female

DRUGS (8)
  1. FORTEO [Suspect]
     Indication: OSTEOPOROSIS
     Dates: start: 20050101
  2. GLUCOPHAGE [Concomitant]
  3. METHOTREXATE [Concomitant]
  4. PLAQUENIL [Concomitant]
  5. VITAMIN PILL [Concomitant]
  6. IRON [Concomitant]
  7. ZYRTEC [Concomitant]
  8. CLARINEX [Concomitant]

REACTIONS (3)
  - EYE PAIN [None]
  - HEADACHE [None]
  - HEART RATE INCREASED [None]
